FAERS Safety Report 16247446 (Version 1)
Quarter: 2019Q2

REPORT INFORMATION
  Report Type: Report from Study
  Country: ES (occurrence: ES)
  Receive Date: 20190428
  Receipt Date: 20190428
  Transmission Date: 20190711
  Serious: Yes (Hospitalization)
  Sender: FDA-Public Use
  Company Number: ES-CONCORDIA PHARMACEUTICALS INC.-E2B_00011786

PATIENT
  Age: 25 Year
  Sex: Female

DRUGS (6)
  1. ZONISAMIDE CAPSULE [Suspect]
     Active Substance: ZONISAMIDE
     Indication: PRODUCT USED FOR UNKNOWN INDICATION
     Route: 048
     Dates: start: 20170619, end: 20170707
  2. CLORAZEPATO DIPOTASIO [Suspect]
     Active Substance: CLORAZEPATE DIPOTASSIUM
     Indication: PRODUCT USED FOR UNKNOWN INDICATION
     Route: 048
     Dates: start: 20170619, end: 20170707
  3. BOI-K [Concomitant]
  4. FLUOXETINA [Concomitant]
     Active Substance: FLUOXETINE HYDROCHLORIDE
  5. TREVICTA [Concomitant]
     Active Substance: PALIPERIDONE PALMITATE
  6. HIDROFEROL [Concomitant]
     Active Substance: CALCIFEDIOL

REACTIONS (1)
  - Agranulocytosis [Recovered/Resolved]

NARRATIVE: CASE EVENT DATE: 20170707
